FAERS Safety Report 5039343-X (Version None)
Quarter: 2006Q2

REPORT INFORMATION
  Report Type: 
  Country: None (occurrence: None)
  Receive Date: 20060623
  Receipt Date: 20060619
  Transmission Date: 20061013
  Serious: Yes (Other)
  Sender: FDA-Public Use
  Company Number: 2006078040

PATIENT
  Sex: Male

DRUGS (1)
  1. DILANTIN [Suspect]

REACTIONS (1)
  - GRAND MAL CONVULSION [None]
